FAERS Safety Report 6129579-9 (Version None)
Quarter: 2009Q1

REPORT INFORMATION
  Report Type: 
  Country: None (occurrence: None)
  Receive Date: 20090324
  Receipt Date: 20090312
  Transmission Date: 20090719
  Serious: Yes (Hospitalization, Other)
  Sender: FDA-Public Use
  Company Number: GB-PFIZER INC-2007069943

PATIENT

DRUGS (5)
  1. DOXYCYCLINE HYCLATE [Suspect]
     Indication: PERIODONTITIS
     Route: 048
     Dates: start: 20070616, end: 20070804
  2. ATENOLOL [Concomitant]
     Dates: start: 20060804
  3. LEVOTHYROXINE SODIUM [Concomitant]
     Dates: start: 19970512
  4. SIMVASTATIN [Concomitant]
     Dates: start: 20051003
  5. SUMATRIPTAN SUCCINATE [Concomitant]
     Dates: start: 19990116

REACTIONS (2)
  - CHEST PAIN [None]
  - OESOPHAGITIS [None]
